FAERS Safety Report 4887912-X (Version None)
Quarter: 2006Q1

REPORT INFORMATION
  Report Type: 
  Country: None (occurrence: None)
  Receive Date: 20060123
  Receipt Date: 20051005
  Transmission Date: 20060701
  Serious: Yes (Hospitalization, Other)
  Sender: FDA-Public Use
  Company Number: US-MERCK-0510USA04066

PATIENT
  Age: 60 Year
  Sex: Male
  Weight: 95 kg

DRUGS (7)
  1. VIOXX [Suspect]
     Indication: ARTHRITIS
     Route: 048
     Dates: start: 20020601, end: 20040501
  2. ALBUTEROL [Concomitant]
     Route: 065
  3. BUTALBITAL [Concomitant]
     Route: 065
  4. CLONAZEPAM [Concomitant]
     Route: 065
  5. ZANAFLEX [Concomitant]
     Route: 065
  6. [THERAPY UNSPECIFIED] [Concomitant]
     Route: 065
  7. PAXIL [Concomitant]
     Route: 065

REACTIONS (3)
  - ARRHYTHMIA [None]
  - CHEST PAIN [None]
  - ISCHAEMIC STROKE [None]
